FAERS Safety Report 8341359-2 (Version None)
Quarter: 2012Q2

REPORT INFORMATION
  Report Type: 
  Country: None (occurrence: None)
  Receive Date: 20120507
  Receipt Date: 20091117
  Transmission Date: 20120825
  Serious: No
  Sender: FDA-Public Use
  Company Number: US-TEVA-2009029170

PATIENT
  Sex: Female

DRUGS (2)
  1. RITUXAN [Concomitant]
  2. TREANDA [Suspect]
     Indication: NON-HODGKIN'S LYMPHOMA
     Route: 042
     Dates: end: 20091020

REACTIONS (2)
  - INFUSION SITE VESICLES [None]
  - INFUSION SITE IRRITATION [None]
